FAERS Safety Report 15890656 (Version 9)
Quarter: 2019Q2

REPORT INFORMATION
  Report Type: Report from Study
  Country: CN (occurrence: CN)
  Receive Date: 20190130
  Receipt Date: 20190423
  Transmission Date: 20190711
  Serious: Yes (Hospitalization)
  Sender: FDA-Public Use
  Company Number: CN-AMGEN-CHNCT2019012928

PATIENT
  Age: 74 Year
  Sex: Female
  Weight: 54 kg

DRUGS (42)
  1. METHYLPREDNISOLONE SODIUM SUCCINATE. [Concomitant]
     Active Substance: METHYLPREDNISOLONE SODIUM SUCCINATE
     Dosage: 40 MILLIGRAM, Q12H AND 40 MILLIGRAM
     Route: 042
     Dates: start: 20190119, end: 20190201
  2. INSULIN INJECTION [Concomitant]
     Active Substance: INSULIN NOS
     Dosage: 8 UNK
     Route: 042
     Dates: start: 20190104, end: 20190104
  3. URSODEOXYCHOLIC ACID [Concomitant]
     Active Substance: URSODIOL
     Dosage: 250 MILLIGRAM
     Route: 048
     Dates: start: 20190115, end: 20190201
  4. BLINATUMOMAB [Suspect]
     Active Substance: BLINATUMOMAB
     Dosage: 28 MICROGRAM, QD
     Route: 042
     Dates: end: 20190119
  5. FILGRASTIM [Concomitant]
     Active Substance: FILGRASTIM
     Dosage: 300 UNK
     Route: 058
     Dates: start: 20190114, end: 20190121
  6. SODIUM CHLORIDE. [Concomitant]
     Active Substance: SODIUM CHLORIDE
     Dosage: 1 UNK, 3-250 MILLILITER
     Dates: start: 20190103, end: 20190125
  7. SODIUM CITRATE. [Concomitant]
     Active Substance: SODIUM CITRATE
     Dosage: 200 MILLILITER
     Route: 048
     Dates: start: 20190105, end: 20190105
  8. BLINATUMOMAB [Suspect]
     Active Substance: BLINATUMOMAB
     Indication: B PRECURSOR TYPE ACUTE LEUKAEMIA
     Dosage: 9 MICROGRAM, QD
     Route: 042
     Dates: start: 20190103
  9. CETYLPYRIDINIUM CHLORIDE. [Concomitant]
     Active Substance: CETYLPYRIDINIUM CHLORIDE
     Dosage: 10-20 MILLILITER
     Route: 050
     Dates: start: 20181214, end: 20190109
  10. FUROSEMIDE. [Concomitant]
     Active Substance: FUROSEMIDE
     Dosage: 20-40 MILLIGRAM
     Dates: start: 20190112
  11. DEXAMETHASONE SODIUM PHOSPHATE. [Concomitant]
     Active Substance: DEXAMETHASONE SODIUM PHOSPHATE
     Dosage: 2-8 MILLIGRAM AND 500 MILLILITER
     Dates: start: 20181217, end: 20190126
  12. DIPHENHYDRAMINE HYDROCHLORIDE. [Concomitant]
     Active Substance: DIPHENHYDRAMINE HYDROCHLORIDE
     Dosage: 20 MILLIGRAM
     Route: 058
     Dates: start: 20190115, end: 20190115
  13. ACICLOVIR [Concomitant]
     Active Substance: ACYCLOVIR
     Dosage: 0.2 GRAM
     Route: 048
     Dates: start: 20190111, end: 20190121
  14. VANCOMYCIN HYDROCHLORIDE. [Concomitant]
     Active Substance: VANCOMYCIN HYDROCHLORIDE
     Dosage: 500 MILLIGRAM  AND 1 GRAM
     Route: 042
     Dates: start: 20190113, end: 20190129
  15. CALCITRIOL. [Concomitant]
     Active Substance: CALCITRIOL
     Dosage: 0.25 UNK TO 500 ML
     Route: 048
     Dates: start: 20181214, end: 20190210
  16. LIDOCAINE HYDROCHLORIDE. [Concomitant]
     Active Substance: LIDOCAINE HYDROCHLORIDE
     Dosage: 0.1 GRAM
     Dates: start: 20181217, end: 20190130
  17. CEFTAZIDIME. [Concomitant]
     Active Substance: CEFTAZIDIME
     Dosage: 1 G, Q8H
     Route: 042
     Dates: start: 20190110, end: 20190201
  18. CAPTOPRIL. [Concomitant]
     Active Substance: CAPTOPRIL
     Dosage: 6.25 MILLIGRAM
     Route: 048
     Dates: start: 20190107, end: 20190121
  19. OSELTAMIVIR PHOSPHATE. [Concomitant]
     Active Substance: OSELTAMIVIR PHOSPHATE
     Dosage: 75 MILLIGRAM
     Route: 048
     Dates: start: 20190122, end: 20190212
  20. CALCIUM GLUCONATE. [Concomitant]
     Active Substance: CALCIUM GLUCONATE
     Dosage: 1 MILLIGRAM
     Route: 042
     Dates: start: 20190114, end: 20190114
  21. POTASSIUM CHLORIDE. [Concomitant]
     Active Substance: POTASSIUM CHLORIDE
     Dosage: 0.5 GRAM
     Route: 048
     Dates: start: 20190104, end: 20190117
  22. SULFAMETHOXAZOLE [Concomitant]
     Active Substance: SULFAMETHOXAZOLE
     Dosage: 2 UNK
     Route: 048
     Dates: start: 20190111, end: 20190209
  23. FEBUXOSTAT. [Concomitant]
     Active Substance: FEBUXOSTAT
     Dosage: 40 MILLIGRAM
     Route: 048
     Dates: start: 20190103, end: 20190116
  24. IPRATROPIUM BROMIDE. [Concomitant]
     Active Substance: IPRATROPIUM BROMIDE
     Dosage: 2.5 MILLILITER
     Route: 045
     Dates: start: 20190117, end: 20190211
  25. SODIUM BICARBONATE. [Concomitant]
     Active Substance: SODIUM BICARBONATE
     Dosage: 0.5-12.5  GRAM
     Dates: start: 20190103, end: 20190113
  26. DEXAMETHASONE. [Concomitant]
     Active Substance: DEXAMETHASONE
     Dosage: 20 MILLIGRAM
     Dates: start: 20190103, end: 20190110
  27. POTASSIUM PERMANGANATE [Concomitant]
     Active Substance: POTASSIUM PERMANGANATE
     Dosage: 0.1 GRAM
     Route: 050
     Dates: start: 20181214, end: 20190201
  28. CASPOFUNGIN ACETATE. [Concomitant]
     Active Substance: CASPOFUNGIN ACETATE
     Dosage: 50 MILLIGRAM, QD AND 50 MILLIGRAM
     Route: 042
     Dates: start: 20190119
  29. DEXAMETHASONE ACETATE [Concomitant]
     Active Substance: DEXAMETHASONE ACETATE
     Dosage: 0.75 MILLIGRAM
     Route: 048
     Dates: start: 20190119, end: 20190119
  30. ITRACONAZOLE. [Concomitant]
     Active Substance: ITRACONAZOLE
     Dosage: 15 MILLILITER
     Route: 048
     Dates: start: 20190114, end: 20190121
  31. ADEMETIONINE 1,4-BUTANEDISULFONATE [Concomitant]
     Dosage: 1 MILLIGRAM
     Route: 048
     Dates: start: 20190118, end: 20190201
  32. GANCICLOVIR. [Concomitant]
     Active Substance: GANCICLOVIR
     Dosage: 250 MILLIGRAM
     Route: 042
     Dates: start: 20190119, end: 20190122
  33. PRAZOSIN HYDROCHLORIDE. [Concomitant]
     Active Substance: PRAZOSIN HYDROCHLORIDE
     Dosage: 1 MILLIGRAM
     Route: 048
     Dates: start: 20190103, end: 20190103
  34. PARACETAMOL [Concomitant]
     Active Substance: ACETAMINOPHEN
     Dosage: 650 MILLIGRAM
     Route: 048
     Dates: start: 20190103, end: 20190113
  35. BUDESONIDE. [Concomitant]
     Active Substance: BUDESONIDE
     Dosage: 1 MILLIGRAM
     Route: 045
     Dates: start: 20190108, end: 20190201
  36. MEROPENEM. [Concomitant]
     Active Substance: MEROPENEM
     Dosage: 1 GRAM
     Route: 042
     Dates: start: 20190110, end: 20190119
  37. OXYGEN. [Concomitant]
     Active Substance: OXYGEN
     Dosage: UNK
     Route: 045
     Dates: start: 20190111, end: 20190201
  38. CALCIUM CARBONATE. [Concomitant]
     Active Substance: CALCIUM CARBONATE
     Dosage: 500 MILLIGRAM
     Route: 048
     Dates: start: 20181214, end: 20190116
  39. CYTARABINE HYDROCHLORIDE [Concomitant]
     Active Substance: CYTARABINE HYDROCHLORIDE
     Dosage: 1 GRAM
     Route: 050
     Dates: start: 20181217, end: 20181217
  40. IOVERSOL [Concomitant]
     Active Substance: IOVERSOL
     Dosage: 100 MILLILITER
     Route: 042
     Dates: start: 20190119, end: 20190119
  41. BICYCLOL [Concomitant]
     Active Substance: BICYCLOL
     Dosage: 25 MILLIGRAM
     Route: 048
     Dates: start: 20190114, end: 20190201
  42. POLYENE PHOSPHATIDYLCHOLINE [Concomitant]
     Active Substance: PHOSPHOLIPID
     Dosage: 2 UNK
     Route: 048
     Dates: start: 20190114, end: 20190201

REACTIONS (1)
  - Interstitial lung disease [Not Recovered/Not Resolved]

NARRATIVE: CASE EVENT DATE: 20190125
